FAERS Safety Report 4699466-1 (Version None)
Quarter: 2005Q2

REPORT INFORMATION
  Report Type: 
  Country: None (occurrence: None)
  Receive Date: 20050623
  Receipt Date: 20050623
  Transmission Date: 20051028
  Serious: No
  Sender: FDA-Public Use
  Company Number: None

PATIENT
  Age: 66 Year
  Sex: Male

DRUGS (9)
  1. ESMOLOL HCL [Suspect]
  2. CLONIDINE HCL [Concomitant]
  3. METOPROLOL TARTRATE [Concomitant]
  4. RANITIDINE HYDROCHLORIDE [Concomitant]
  5. PENICILLIN G POTASSIUM [Concomitant]
  6. HEPARIN SODIUM [Concomitant]
  7. FENTANYL CITRATE [Concomitant]
  8. NITROGLYCERIN [Concomitant]
  9. REGULAR INSULIN [Concomitant]

REACTIONS (1)
  - CONVULSION [None]
